FAERS Safety Report 8551560-0 (Version None)
Quarter: 2012Q3

REPORT INFORMATION
  Report Type: 
  Country: None (occurrence: None)
  Receive Date: 20120730
  Receipt Date: 20120720
  Transmission Date: 20120928
  Serious: Yes (Hospitalization)
  Sender: FDA-Public Use
  Company Number: US-BAYER-2012-074380

PATIENT
  Age: 19 Year
  Sex: Female
  Weight: 77.8 kg

DRUGS (11)
  1. ALBUTEROL [Concomitant]
     Indication: DYSPNOEA
     Dosage: 90 MCG, QID, 2 PUFFS
     Route: 045
     Dates: start: 20070305, end: 20090428
  2. VICODIN [Concomitant]
     Indication: PAIN
  3. YASMIN [Suspect]
  4. HYDROCODONE BITARTRATE AND ACETAMINOPHEN [Concomitant]
     Indication: PAIN
     Dosage: 5/500 MG, 1 TO 2 Q 6 TO 8 H PRN WITH FOOD
     Route: 048
  5. YAZ [Suspect]
     Indication: CONTRACEPTION
  6. IBUPROFEN [Concomitant]
     Dosage: OCCASIONAL
     Dates: start: 20000622, end: 20090618
  7. ALLEGRA [Concomitant]
     Indication: ASTHMA
     Dosage: 180 MG, DAILY
     Route: 048
     Dates: start: 20081125, end: 20090428
  8. ASPIRIN [Concomitant]
  9. ALLEGRA [Concomitant]
     Indication: MULTIPLE ALLERGIES
  10. CLINORIL [Concomitant]
     Dosage: 200 MG, BID WITH MEALS
     Route: 048
     Dates: start: 20080915
  11. SINGULAIR [Concomitant]
     Indication: ASTHMA
     Dosage: 10 MG, DAILY
     Route: 048
     Dates: start: 20081125, end: 20090428

REACTIONS (1)
  - DEEP VEIN THROMBOSIS [None]
